FAERS Safety Report 16902656 (Version 1)
Quarter: 2019Q4

REPORT INFORMATION
  Report Type: Spontaneous
  Country: DK (occurrence: DK)
  Receive Date: 20191010
  Receipt Date: 20191010
  Transmission Date: 20200122
  Serious: Yes (Other)
  Sender: FDA-Public Use
  Company Number: DK-TEVA-2019-DK-1023244

PATIENT
  Age: 73 Year
  Sex: Male
  Weight: 95 kg

DRUGS (2)
  1. ACLASTA [Suspect]
     Active Substance: ZOLEDRONIC ACID
     Indication: OSTEOPOROSIS
     Dosage: STRENGTH: 5 MG/100ML
     Route: 042
     Dates: start: 20161216, end: 201812
  2. ALENDRONIC ACID [Suspect]
     Active Substance: ALENDRONIC ACID
     Indication: OSTEOPOROSIS
     Dosage: STRENGTH 70 MG
     Route: 048
     Dates: start: 20141009, end: 20160104

REACTIONS (9)
  - Oral pustule [Unknown]
  - Hypoaesthesia oral [Not Recovered/Not Resolved]
  - Pain in jaw [Recovered/Resolved]
  - Impaired healing [Not Recovered/Not Resolved]
  - Jaw fistula [Not Recovered/Not Resolved]
  - Swelling face [Unknown]
  - Hypoaesthesia teeth [Not Recovered/Not Resolved]
  - Exposed bone in jaw [Not Recovered/Not Resolved]
  - Osteonecrosis of jaw [Not Recovered/Not Resolved]

NARRATIVE: CASE EVENT DATE: 2018
